FAERS Safety Report 8316802 (Version 2)
Quarter: 2012Q4

REPORT INFORMATION
  Report Type: Spontaneous
  Country: US (occurrence: None)
  Receive Date: 20111220
  Receipt Date: 20120913
  Transmission Date: 20130627
  Serious: Yes (Other)
  Sender: FDA-Public Use
  Company Number: 1128608

PATIENT
  Age: 10 Year
  Sex: Female
  Weight: 34.09 kg

DRUGS (4)
  1. PROPOFOL [Suspect]
     Indication: SEDATIVE THERAPY
     Route: 042
     Dates: start: 20111007, end: 20111007
  2. MIDAZOLAM INJECTION USP (MIDAZOLAM) [Concomitant]
  3. KETAMINE HCL INJ., USP 10ML MULTI DOSE FLIPTOP VIAL, 50MG/ML, CS/100 (KETAMINE HYDROCHLORIDE) [Concomitant]
  4. DECADRON /00016001/ [Concomitant]

REACTIONS (5)
  - Staphylococcal infection [None]
  - Pyrexia [None]
  - Nausea [None]
  - Vomiting [None]
  - Endocarditis [None]
